FAERS Safety Report 24967176 (Version 1)
Quarter: 2025Q1

REPORT INFORMATION
  Report Type: Spontaneous
  Country: CN (occurrence: CN)
  Receive Date: 20250213
  Receipt Date: 20250213
  Transmission Date: 20250408
  Serious: Yes (Hospitalization, Other)
  Sender: BEIGENE
  Company Number: CN-BEIGENE-BGN-2025-001969

PATIENT
  Age: 77 Year
  Weight: 55 kg

DRUGS (20)
  1. TISLELIZUMAB [Suspect]
     Active Substance: TISLELIZUMAB
     Indication: Oesophageal carcinoma
     Dosage: 200 MILLIGRAM, Q3WK
  2. TISLELIZUMAB [Suspect]
     Active Substance: TISLELIZUMAB
     Indication: Metastases to the mediastinum
     Dosage: 200 MILLIGRAM, Q3WK
  3. TISLELIZUMAB [Suspect]
     Active Substance: TISLELIZUMAB
     Indication: Metastasis
     Dosage: 200 MILLIGRAM, Q3WK
     Route: 041
  4. TISLELIZUMAB [Suspect]
     Active Substance: TISLELIZUMAB
     Dosage: 200 MILLIGRAM, Q3WK
     Route: 041
  5. TISLELIZUMAB [Suspect]
     Active Substance: TISLELIZUMAB
     Dosage: 200 MILLIGRAM, Q3WK
  6. TISLELIZUMAB [Suspect]
     Active Substance: TISLELIZUMAB
     Dosage: 200 MILLIGRAM, Q3WK
  7. TISLELIZUMAB [Suspect]
     Active Substance: TISLELIZUMAB
     Dosage: 200 MILLIGRAM, Q3WK
     Route: 041
  8. TISLELIZUMAB [Suspect]
     Active Substance: TISLELIZUMAB
     Dosage: 200 MILLIGRAM, Q3WK
     Route: 041
  9. CARBOPLATIN [Suspect]
     Active Substance: CARBOPLATIN
     Indication: Oesophageal carcinoma
     Dosage: 320 MILLIGRAM, Q3WK
  10. CARBOPLATIN [Suspect]
     Active Substance: CARBOPLATIN
     Indication: Metastases to the mediastinum
     Dosage: 320 MILLIGRAM, Q3WK
     Route: 041
  11. CARBOPLATIN [Suspect]
     Active Substance: CARBOPLATIN
     Indication: Metastasis
     Dosage: 300 MILLIGRAM, Q3WK
  12. CARBOPLATIN [Suspect]
     Active Substance: CARBOPLATIN
     Dosage: 300 MILLIGRAM, Q3WK
     Route: 041
  13. PACLITAXEL [Suspect]
     Active Substance: PACLITAXEL
     Indication: Oesophageal carcinoma
     Dosage: 320 MILLIGRAM, Q3WK
  14. PACLITAXEL [Suspect]
     Active Substance: PACLITAXEL
     Indication: Metastases to the mediastinum
     Dosage: 320 MILLIGRAM, Q3WK
     Route: 041
  15. PACLITAXEL [Suspect]
     Active Substance: PACLITAXEL
     Indication: Metastasis
     Dosage: 300 MILLIGRAM, Q3WK
  16. PACLITAXEL [Suspect]
     Active Substance: PACLITAXEL
     Dosage: 300 MILLIGRAM, Q3WK
     Route: 041
  17. SODIUM CHLORIDE [Concomitant]
     Active Substance: SODIUM CHLORIDE
     Indication: Vehicle solution use
     Dosage: 100 MILLILITER, QD
     Route: 041
  18. SODIUM CHLORIDE [Concomitant]
     Active Substance: SODIUM CHLORIDE
     Dosage: 100 MILLILITER, QD
  19. DEXTROSE [Concomitant]
     Active Substance: DEXTROSE MONOHYDRATE
     Indication: Vehicle solution use
     Dosage: 250 MILLILITER, QD
     Route: 041
  20. DEXTROSE [Concomitant]
     Active Substance: DEXTROSE MONOHYDRATE
     Dosage: 250 MILLILITER, QD

REACTIONS (12)
  - Arrhythmia [Recovering/Resolving]
  - White blood cell count decreased [Recovered/Resolved]
  - Neutrophil count decreased [Recovering/Resolving]
  - Dyspnoea [Recovering/Resolving]
  - Cardiac failure [Recovering/Resolving]
  - Pyrexia [Recovering/Resolving]
  - Pneumonia [Recovering/Resolving]
  - Myelosuppression [Unknown]
  - Nausea [Recovered/Resolved]
  - Vomiting [Recovered/Resolved]
  - Asthenia [Unknown]
  - Decreased appetite [Unknown]
